FAERS Safety Report 22082715 (Version 1)
Quarter: 2023Q1

REPORT INFORMATION
  Report Type: Spontaneous
  Country: JP (occurrence: None)
  Receive Date: 20230310
  Receipt Date: 20230310
  Transmission Date: 20230418
  Serious: Yes (Other)
  Sender: FDA-Public Use
  Company Number: 2023A055795

PATIENT
  Sex: Male

DRUGS (1)
  1. LOKELMA [Suspect]
     Active Substance: SODIUM ZIRCONIUM CYCLOSILICATE
     Dosage: DOSE UNKNOWN, IN THE MORNING
     Route: 048
     Dates: start: 202101

REACTIONS (3)
  - Cardiac amyloidosis [Unknown]
  - Cardiac disorder [Unknown]
  - Drug ineffective [Unknown]
